FAERS Safety Report 6461064-7 (Version None)
Quarter: 2009Q4

REPORT INFORMATION
  Report Type: 
  Country: None (occurrence: None)
  Receive Date: 20091130
  Receipt Date: 20091124
  Transmission Date: 20100525
  Serious: Yes (Death)
  Sender: FDA-Public Use
  Company Number: B0605226A

PATIENT
  Sex: Female
  Weight: 100 kg

DRUGS (1)
  1. ZANAMIVIR [Suspect]
     Indication: H1N1 INFLUENZA
     Dosage: 600MG TWICE PER DAY
     Route: 042
     Dates: start: 20091105

REACTIONS (1)
  - ACUTE RESPIRATORY DISTRESS SYNDROME [None]
